FAERS Safety Report 8790778 (Version 1)
Quarter: 2012Q4

REPORT INFORMATION
  Report Type: Spontaneous
  Country: US (occurrence: None)
  Receive Date: 20120913
  Receipt Date: 20120913
  Transmission Date: 20130627
  Serious: Yes (Hospitalization)
  Sender: FDA-Public Use
  Company Number: None

PATIENT
  Age: 73 Year
  Sex: Female
  Weight: 95 kg

DRUGS (17)
  1. LITHIUM CARBONATE [Suspect]
     Indication: BIPOLAR DISORDER
     Dosage: Several years (at least 2)
     Route: 048
  2. NIFEDIPINE ER [Concomitant]
  3. APAP [Concomitant]
  4. ASPIRIN [Concomitant]
  5. BENEFIBER [Concomitant]
  6. DIOVAN [Concomitant]
  7. DOCUSATE [Concomitant]
  8. ERGOCALCIFEROL [Concomitant]
  9. FLAXSEED OIL [Concomitant]
  10. HYDROCERIN [Concomitant]
  11. LEVOTHYROXINE [Concomitant]
  12. LIDODERM PATCH [Concomitant]
  13. NYSTATIN TOPICAL CREAM [Concomitant]
  14. MIRALAX [Concomitant]
  15. NATURAL TEARS EYE DROPS [Concomitant]
  16. TOPIRAMATE [Concomitant]
  17. VITAMIN B-6 [Concomitant]

REACTIONS (10)
  - Asthenia [None]
  - Diarrhoea [None]
  - Nausea [None]
  - Dehydration [None]
  - Ataxia [None]
  - Tremor [None]
  - Renal failure [None]
  - Toxicity to various agents [None]
  - Electrocardiogram T wave abnormal [None]
  - Blood creatinine increased [None]
